FAERS Safety Report 18208833 (Version 1)
Quarter: 2020Q3

REPORT INFORMATION
  Report Type: Report from Study
  Country: US (occurrence: US)
  Receive Date: 20200828
  Receipt Date: 20200828
  Transmission Date: 20201103
  Serious: Yes (Hospitalization)
  Sender: FDA-Public Use
  Company Number: US-EXELIXIS-CABO-20030961

PATIENT
  Age: 81 Year
  Sex: Male

DRUGS (3)
  1. CABOMETYX [Suspect]
     Active Substance: CABOZANTINIB S-MALATE
     Dosage: TAKING 60 MG TABLETS BY SPLITTING IN HALF
     Dates: start: 20200710
  2. CABOMETYX [Suspect]
     Active Substance: CABOZANTINIB S-MALATE
     Indication: RENAL CELL CARCINOMA
     Dosage: 60 MG
     Dates: start: 20200617, end: 20200620
  3. CABOMETYX [Suspect]
     Active Substance: CABOZANTINIB S-MALATE
     Dosage: 40 MG, QD
     Dates: start: 20200807

REACTIONS (11)
  - Transient ischaemic attack [Unknown]
  - Hypersensitivity [Unknown]
  - Hallucination [Unknown]
  - Wrong technique in product usage process [Unknown]
  - Asthenia [Unknown]
  - Cognitive disorder [Unknown]
  - Urinary incontinence [Unknown]
  - Rash [Unknown]
  - Confusional state [Unknown]
  - Fatigue [Unknown]
  - Decreased appetite [Unknown]

NARRATIVE: CASE EVENT DATE: 20200710
